FAERS Safety Report 8902553 (Version 1)
Quarter: 2012Q4

REPORT INFORMATION
  Report Type: 
  Country: CA (occurrence: CA)
  Receive Date: 20121112
  Receipt Date: 20121112
  Transmission Date: 20130627
  Serious: Yes (Other)
  Sender: FDA-Public Use
  Company Number: CA-ASTRAZENECA-2012SE83720

PATIENT
  Age: 81 Year
  Sex: Female

DRUGS (2)
  1. PULMICORT TURBUHALER [Suspect]
     Route: 055
  2. ATACAND [Concomitant]
     Route: 048

REACTIONS (6)
  - Blister [Unknown]
  - Fatigue [Unknown]
  - Lymphadenopathy [Unknown]
  - Oedema peripheral [Unknown]
  - Skin papilloma [Unknown]
  - Localised oedema [Unknown]
